FAERS Safety Report 15073454 (Version 1)
Quarter: 2018Q2

REPORT INFORMATION
  Report Type: Spontaneous
  Country: US (occurrence: US)
  Receive Date: 20180627
  Receipt Date: 20180627
  Transmission Date: 20180711
  Serious: No
  Sender: FDA-Public Use
  Company Number: US-PFIZER INC-2018257784

PATIENT

DRUGS (1)
  1. VIAGRA [Suspect]
     Active Substance: SILDENAFIL CITRATE
     Indication: ERECTILE DYSFUNCTION
     Dosage: 25 MG, 1X/DAY, AT NIGHT
     Route: 048

REACTIONS (3)
  - Erection increased [Unknown]
  - Ejaculation disorder [Unknown]
  - Semen volume increased [Unknown]

NARRATIVE: CASE EVENT DATE: 201803
